FAERS Safety Report 6336713-4 (Version None)
Quarter: 2009Q3

REPORT INFORMATION
  Report Type: 
  Country: None (occurrence: None)
  Receive Date: 20090901
  Receipt Date: 20090825
  Transmission Date: 20100115
  Serious: Yes (Death)
  Sender: FDA-Public Use
  Company Number: US-ASTRAZENECA-2009SE10243

PATIENT
  Sex: Female

DRUGS (4)
  1. TOPROL-XL [Suspect]
     Indication: HYPERTENSION
     Route: 048
  2. TOPROL-XL [Suspect]
     Indication: CARDIAC DISORDER
     Route: 048
  3. LISINOPRIL [Suspect]
     Indication: HYPERTENSION
     Route: 048
  4. LISINOPRIL [Suspect]
     Indication: CARDIAC DISORDER
     Route: 048

REACTIONS (4)
  - ASTHENIA [None]
  - DEATH [None]
  - DIARRHOEA [None]
  - PRURITUS [None]
